FAERS Safety Report 7161618-9 (Version None)
Quarter: 2010Q4

REPORT INFORMATION
  Report Type: 
  Country: None (occurrence: None)
  Receive Date: 20101215
  Receipt Date: 20101208
  Transmission Date: 20110411
  Serious: Yes (Other)
  Sender: FDA-Public Use
  Company Number: DE-JNJFOC-20101203274

PATIENT
  Sex: Male
  Weight: 87 kg

DRUGS (4)
  1. RISPERDAL [Suspect]
     Indication: ILL-DEFINED DISORDER
     Route: 048
     Dates: start: 20101207, end: 20101207
  2. FLUOXETINE HCL [Suspect]
     Indication: ILL-DEFINED DISORDER
     Route: 048
     Dates: start: 20101207, end: 20101207
  3. PROMETHAZINE [Suspect]
     Indication: ILL-DEFINED DISORDER
     Route: 048
     Dates: start: 20101207, end: 20101207
  4. SEROQUEL [Suspect]
     Indication: ILL-DEFINED DISORDER
     Route: 048
     Dates: start: 20101207, end: 20101207

REACTIONS (4)
  - MULTIPLE DRUG OVERDOSE INTENTIONAL [None]
  - SOPOR [None]
  - SUICIDAL IDEATION [None]
  - SUICIDE ATTEMPT [None]
